FAERS Safety Report 4515143-1 (Version None)
Quarter: 2004Q4

REPORT INFORMATION
  Report Type: 
  Country: None (occurrence: None)
  Receive Date: 20041130
  Receipt Date: 20041130
  Transmission Date: 20050328
  Serious: Yes (Other)
  Sender: FDA-Public Use
  Company Number: None

PATIENT
  Sex: Male

DRUGS (5)
  1. GLEEVEC [Suspect]
     Dosage: GLEEVEC  1QD   ORAL
     Route: 048
     Dates: start: 20041124, end: 20041127
  2. HYDROCHLOROTHIAZIDE [Concomitant]
  3. LOTREL [Concomitant]
  4. AVANDIA [Concomitant]
  5. GLYBURIDE AND METFORMIN HCL [Concomitant]

REACTIONS (2)
  - BLINDNESS [None]
  - GLAUCOMA [None]
